FAERS Safety Report 17352029 (Version 1)
Quarter: 2020Q1

REPORT INFORMATION
  Report Type: Spontaneous
  Country: DK (occurrence: DK)
  Receive Date: 20200130
  Receipt Date: 20200130
  Transmission Date: 20200409
  Serious: Yes (Death, Other)
  Sender: FDA-Public Use
  Company Number: DK-TOLMAR, INC.-20DK020166

PATIENT
  Sex: Male

DRUGS (2)
  1. ELIGARD [Suspect]
     Active Substance: LEUPROLIDE ACETATE
     Indication: ANTIANDROGEN THERAPY
     Dosage: 11.25 MICROGRAM, Q 3 MONTH
  2. CYPROTERONE ACETATE [Suspect]
     Active Substance: CYPROTERONE ACETATE
     Indication: ANTIANDROGEN THERAPY
     Dosage: 300 MG, EVERY 14 DAYS

REACTIONS (3)
  - Cardiac disorder [Unknown]
  - Off label use [Unknown]
  - Death [Fatal]
